FAERS Safety Report 16986832 (Version 1)
Quarter: 2019Q4

REPORT INFORMATION
  Report Type: Spontaneous
  Country: FR (occurrence: FR)
  Receive Date: 20191101
  Receipt Date: 20191101
  Transmission Date: 20200122
  Serious: Yes (Hospitalization)
  Sender: FDA-Public Use
  Company Number: FR-ROCHE-2454870

PATIENT
  Age: 68 Year
  Sex: Female
  Weight: 43 kg

DRUGS (2)
  1. COTELLIC [Suspect]
     Active Substance: COBIMETINIB
     Indication: METASTATIC MALIGNANT MELANOMA
     Route: 048
     Dates: start: 20150523, end: 201507
  2. ZELBORAF [Concomitant]
     Active Substance: VEMURAFENIB
     Indication: METASTATIC MALIGNANT MELANOMA
     Dosage: 3 CP MATIN ET 3 CP LE SOIR
     Route: 048
     Dates: start: 20130221

REACTIONS (1)
  - Atrial septal defect [Recovered/Resolved]

NARRATIVE: CASE EVENT DATE: 201507
